FAERS Safety Report 17135760 (Version 1)
Quarter: 2019Q4

REPORT INFORMATION
  Report Type: Spontaneous
  Country: PL (occurrence: PL)
  Receive Date: 20191210
  Receipt Date: 20191210
  Transmission Date: 20200122
  Serious: Yes (Death, Other)
  Sender: FDA-Public Use
  Company Number: PL-BAUSCH-BL-2019-063835

PATIENT
  Age: 80 Year
  Sex: Male

DRUGS (2)
  1. VELCADE [Suspect]
     Active Substance: BORTEZOMIB
     Indication: PLASMA CELL MYELOMA
     Route: 065
  2. DEXAMETHASONE. [Suspect]
     Active Substance: DEXAMETHASONE
     Indication: PLASMA CELL MYELOMA
     Route: 065

REACTIONS (19)
  - Peripheral embolism [Fatal]
  - Arrhythmia [Unknown]
  - Diarrhoea [Unknown]
  - Thrombocytopenia [Unknown]
  - Cardiac failure [Fatal]
  - Infection [Fatal]
  - Renal impairment [Fatal]
  - Pulmonary oedema [Fatal]
  - Bronchitis [Unknown]
  - Pneumonia [Unknown]
  - Plasma cell myeloma [Fatal]
  - Neutropenia [Unknown]
  - Scleroderma [Unknown]
  - Anaemia [Unknown]
  - Sepsis [Unknown]
  - Upper respiratory tract infection [Unknown]
  - Arrhythmia supraventricular [Fatal]
  - Polyneuropathy [Unknown]
  - Fungal infection [Unknown]

NARRATIVE: CASE EVENT DATE: 201802
